FAERS Safety Report 5460149-1 (Version None)
Quarter: 2007Q3

REPORT INFORMATION
  Report Type: 
  Country: None (occurrence: None)
  Receive Date: 20070919
  Receipt Date: 20070906
  Transmission Date: 20080115
  Serious: Yes (Other)
  Sender: FDA-Public Use
  Company Number: GB-ASTRAZENECA-2007GB01841

PATIENT
  Age: 59 Year
  Sex: Female
  Weight: 80 kg

DRUGS (5)
  1. ARIMIDEX [Suspect]
     Route: 048
     Dates: start: 20070817, end: 20070819
  2. MODURETIC 5-50 [Concomitant]
     Route: 048
  3. PRIMROSE [Concomitant]
     Route: 048
  4. PANTOPRAZOLE SODIUM [Concomitant]
     Route: 048
  5. TELFAST [Concomitant]
     Indication: HYPERSENSITIVITY

REACTIONS (6)
  - EYE IRRITATION [None]
  - EYE PRURITUS [None]
  - MALAISE [None]
  - NASAL CONGESTION [None]
  - SKIN IRRITATION [None]
  - URTICARIA [None]
